FAERS Safety Report 13175680 (Version 1)
Quarter: 2017Q1

REPORT INFORMATION
  Report Type: Spontaneous
  Country: US (occurrence: US)
  Receive Date: 20170201
  Receipt Date: 20170201
  Transmission Date: 20170428
  Serious: No
  Sender: FDA-Public Use
  Company Number: US-SHIRE-US201701029

PATIENT
  Age: 97 Year
  Sex: Female
  Weight: 46.71 kg

DRUGS (2)
  1. XIIDRA [Suspect]
     Active Substance: LIFITEGRAST
     Indication: DRY EYE
     Dosage: 1 GTT IN BOTH EYES, 2X/DAY:BID
     Route: 047
     Dates: start: 20161214
  2. REFRESH OPTIVE [Concomitant]
     Active Substance: CARBOXYMETHYLCELLULOSE SODIUM\GLYCERIN
     Indication: DRY EYE
     Dosage: 1 GTT IN BOTH EYES, 3X/DAY:TID
     Route: 047

REACTIONS (4)
  - Pruritus [Not Recovered/Not Resolved]
  - Instillation site reaction [Unknown]
  - Dry skin [Not Recovered/Not Resolved]
  - Instillation site pain [Unknown]

NARRATIVE: CASE EVENT DATE: 201701
